FAERS Safety Report 5156980-2 (Version None)
Quarter: 2006Q4

REPORT INFORMATION
  Report Type: 
  Country: None (occurrence: None)
  Receive Date: 20061126
  Receipt Date: 20061110
  Transmission Date: 20070319
  Serious: Yes (Hospitalization, Other)
  Sender: FDA-Public Use
  Company Number: CH-ELI_LILLY_AND_COMPANY-CH200611001865

PATIENT
  Age: 36 Year
  Sex: Female
  Weight: 41 kg

DRUGS (5)
  1. ZYPREXA [Suspect]
     Indication: ANOREXIA
     Dosage: 5 MG, DAILY (1/D)
     Route: 048
     Dates: start: 20060906, end: 20061009
  2. DEROXAT                                 /SCH/ [Concomitant]
     Indication: ANOREXIA
     Dosage: 10 MG, DAILY (1/D)
     Route: 048
     Dates: start: 20060906, end: 20061005
  3. DEROXAT                                 /SCH/ [Concomitant]
     Dosage: 20 MG, DAILY (1/D)
     Dates: start: 20061006
  4. XANAX                                   /USA/ [Concomitant]
     Indication: ANOREXIA
     Dosage: 0.5 MG, 3/D
     Route: 048
     Dates: start: 20060930
  5. STILNOX /SCH/ [Concomitant]
     Indication: INSOMNIA
     Dosage: 10 MG, DAILY (1/D)
     Route: 048
     Dates: start: 20060930

REACTIONS (2)
  - CACHEXIA [None]
  - HYPERPROLACTINAEMIA [None]
